FAERS Safety Report 21616096 (Version 1)
Quarter: 2022Q4

REPORT INFORMATION
  Report Type: Spontaneous
  Country: TR (occurrence: TR)
  Receive Date: 20221118
  Receipt Date: 20221118
  Transmission Date: 20230112
  Serious: Yes (Other)
  Sender: FDA-Public Use
  Company Number: TR-GLAXOSMITHKLINE-TR2022GSK169766

PATIENT

DRUGS (4)
  1. BLENREP [Suspect]
     Active Substance: BELANTAMAB MAFODOTIN-BLMF
     Indication: Plasma cell myeloma refractory
     Dosage: 2.5 MG/KG
     Route: 042
  2. BLENREP [Suspect]
     Active Substance: BELANTAMAB MAFODOTIN-BLMF
     Dosage: UNK
     Route: 042
  3. BLENREP [Suspect]
     Active Substance: BELANTAMAB MAFODOTIN-BLMF
     Dosage: THIRD INFUSION
     Route: 042
  4. BLENREP [Suspect]
     Active Substance: BELANTAMAB MAFODOTIN-BLMF
     Dosage: 1.9 MG/KG
     Route: 042

REACTIONS (13)
  - Corneal toxicity [Recovered/Resolved]
  - Keratopathy [Recovered/Resolved]
  - Visual acuity reduced [Recovered/Resolved]
  - Ocular hyperaemia [Recovered/Resolved]
  - Eye pain [Recovered/Resolved]
  - Eye irritation [Recovered/Resolved]
  - Foreign body sensation in eyes [Recovered/Resolved]
  - Vision blurred [Recovered/Resolved]
  - Corneal epithelial microcysts [Recovered/Resolved]
  - Punctate keratitis [Recovered/Resolved]
  - Corneal deposits [Recovered/Resolved]
  - Ophthalmic herpes simplex [Recovered/Resolved]
  - Corneal disorder [Recovered/Resolved]
